FAERS Safety Report 6202193-2 (Version None)
Quarter: 2009Q2

REPORT INFORMATION
  Report Type: 
  Country: None (occurrence: None)
  Receive Date: 20090526
  Receipt Date: 20090519
  Transmission Date: 20091009
  Serious: Yes (Hospitalization)
  Sender: FDA-Public Use
  Company Number: CA-PFIZER INC-2005086791

PATIENT
  Age: 41 Year

DRUGS (11)
  1. PLACEBO (MARAVIROC) [Suspect]
     Indication: HIV INFECTION
     Dosage: UNK
     Route: 048
     Dates: start: 20050330, end: 20050524
  2. ATAZANAVIR SULFATE [Concomitant]
     Route: 048
     Dates: start: 20050330, end: 20050524
  3. RITONAVIR [Concomitant]
     Route: 048
     Dates: start: 20050330, end: 20050524
  4. 3TC [Concomitant]
     Route: 048
     Dates: start: 20050330, end: 20050524
  5. TENOFOVIR [Concomitant]
     Route: 048
     Dates: start: 20050330, end: 20050524
  6. FUZEON [Concomitant]
     Route: 058
     Dates: start: 20050320, end: 20050524
  7. SEPTRA DS [Concomitant]
     Dosage: 1 TABLET
     Route: 048
     Dates: start: 19990201
  8. AZITHROMYCIN [Concomitant]
     Route: 048
     Dates: start: 20030601
  9. FLUCONAZOLE [Concomitant]
     Route: 048
     Dates: start: 20050425
  10. ALL OTHER THERAPEUTIC PRODUCTS [Concomitant]
     Dosage: 2 PUFF AS NEEDED
     Route: 045
     Dates: start: 20040601
  11. CALCIUM [Concomitant]
     Route: 048
     Dates: start: 20040201

REACTIONS (1)
  - PYREXIA [None]
